FAERS Safety Report 6068054-7 (Version None)
Quarter: 2009Q1

REPORT INFORMATION
  Report Type: 
  Country: None (occurrence: None)
  Receive Date: 20090206
  Receipt Date: 20090128
  Transmission Date: 20090719
  Serious: Yes (Other)
  Sender: FDA-Public Use
  Company Number: PT-BAYER-200826865GPV

PATIENT
  Age: 24 Year
  Sex: Female

DRUGS (1)
  1. YASMIN [Suspect]
     Indication: OVARIAN CYST
     Dates: start: 20070701, end: 20080601

REACTIONS (3)
  - DEPRESSED MOOD [None]
  - EPILEPSY [None]
  - FATIGUE [None]
